FAERS Safety Report 9611808 (Version 2)
Quarter: 2013Q4

REPORT INFORMATION
  Report Type: Spontaneous
  Country: JP (occurrence: JP)
  Receive Date: 20131010
  Receipt Date: 20131031
  Transmission Date: 20140711
  Serious: Yes (Other)
  Sender: FDA-Public Use
  Company Number: JP-JNJFOC-20131003119

PATIENT
  Sex: Male

DRUGS (2)
  1. TRAMCET [Suspect]
     Indication: PAIN
     Dosage: TWICE DAILY
     Route: 048
     Dates: start: 20130928
  2. TRAMCET [Suspect]
     Indication: PAIN
     Route: 048

REACTIONS (3)
  - Hepatic steatosis [Unknown]
  - Dizziness [Unknown]
  - Fall [Unknown]
